FAERS Safety Report 5089979-5 (Version None)
Quarter: 2006Q3

REPORT INFORMATION
  Report Type: 
  Country: None (occurrence: None)
  Receive Date: 20060731
  Receipt Date: 20060324
  Transmission Date: 20061208
  Serious: Yes (Other)
  Sender: FDA-Public Use
  Company Number: 200611343BWH

PATIENT
  Age: 76 Year
  Sex: Male

DRUGS (16)
  1. AVELOX [Suspect]
     Indication: PNEUMONIA STAPHYLOCOCCAL
     Dosage: 400 MG, QD, INTRAVENOUS
     Route: 042
     Dates: start: 20060304, end: 20060306
  2. PROGRAF [Concomitant]
  3. CELLCEPT [Concomitant]
  4. PREDNISONE [Concomitant]
  5. LABETALOL HCL [Concomitant]
  6. LASIX [Concomitant]
  7. ALLOPURINOL [Concomitant]
  8. PLENDIL [Concomitant]
  9. LISINOPRIL [Concomitant]
  10. ZOCOR [Concomitant]
  11. OMEPRAZOLE [Concomitant]
  12. CALCIUM GLUCONATE [Concomitant]
  13. SODIUM BICARBONATE [Concomitant]
  14. ANDRODERM [Concomitant]
  15. CALCITRIOL [Concomitant]
  16. ROCEPHIN [Concomitant]

REACTIONS (8)
  - AGITATION [None]
  - CONFUSIONAL STATE [None]
  - DELIRIUM [None]
  - DEMENTIA [None]
  - DISORIENTATION [None]
  - HALLUCINATION [None]
  - PSYCHOTIC DISORDER [None]
  - RESTLESSNESS [None]
